FAERS Safety Report 4682244-7 (Version None)
Quarter: 2005Q2

REPORT INFORMATION
  Report Type: 
  Country: None (occurrence: None)
  Receive Date: 20050606
  Receipt Date: 20050601
  Transmission Date: 20051028
  Serious: Yes (Death, Hospitalization)
  Sender: FDA-Public Use
  Company Number: PHBS2005CO07856

PATIENT
  Age: 73 Year
  Sex: Male

DRUGS (3)
  1. EPAMIN [Concomitant]
     Dates: end: 20050511
  2. CAPTIN [Concomitant]
     Dates: end: 20050511
  3. TRILEPTAL [Suspect]
     Indication: CONVULSION
     Dosage: 600 MG, Q12H
     Route: 048
     Dates: start: 19970101, end: 20050511

REACTIONS (2)
  - CORONARY ARTERY SURGERY [None]
  - MYOCARDIAL INFARCTION [None]
